FAERS Safety Report 8364381 (Version 2)
Quarter: 2013Q1

REPORT INFORMATION
  Report Type: Report from Study
  Country: US (occurrence: US)
  Receive Date: 20120127
  Receipt Date: 20130131
  Transmission Date: 20140127
  Serious: No
  Sender: FDA-Public Use
  Company Number: US-ABBOTT-11P-163-0698537-00

PATIENT
  Age: 46 None
  Sex: Female

DRUGS (9)
  1. HUMIRA [Suspect]
     Indication: PSORIATIC ARTHROPATHY
     Dates: start: 2009
  2. HUMIRA [Suspect]
  3. CLARITIN [Concomitant]
     Indication: PRODUCT USED FOR UNKNOWN INDICATION
     Route: 048
  4. OXYCODONE [Concomitant]
     Indication: PAIN
     Dosage: 15 MG EVERY 4-6 HOURS AS NEEDED UP TO 5 TIMES A DAY
     Route: 048
  5. KLONOPIN [Concomitant]
     Indication: PRODUCT USED FOR UNKNOWN INDICATION
     Route: 048
  6. BACLOFEN [Concomitant]
     Indication: MUSCLE RELAXANT THERAPY
     Route: 048
  7. NEXIUM [Concomitant]
     Indication: GASTRIC BYPASS
     Route: 048
  8. MIGRAINE MEDICATION [Concomitant]
     Indication: MIGRAINE
  9. NASONEX [Concomitant]
     Indication: SEASONAL ALLERGY
     Dosage: SPRAY

REACTIONS (10)
  - Oropharyngeal pain [Not Recovered/Not Resolved]
  - Device malfunction [Unknown]
  - Drug dose omission [Unknown]
  - Intervertebral disc protrusion [Unknown]
  - Incorrect dose administered [Unknown]
  - Device malfunction [Unknown]
  - Injection site pain [Unknown]
  - Injection site pain [Not Recovered/Not Resolved]
  - Injection site pain [Not Recovered/Not Resolved]
  - Injection site haemorrhage [Not Recovered/Not Resolved]
